FAERS Safety Report 14974993 (Version 3)
Quarter: 2019Q4

REPORT INFORMATION
  Report Type: Spontaneous
  Country: US (occurrence: US)
  Receive Date: 20180605
  Receipt Date: 20191213
  Transmission Date: 20200122
  Serious: Yes (Hospitalization, Other)
  Sender: FDA-Public Use
  Company Number: US-PFIZER INC-2018222873

PATIENT
  Age: 66 Year
  Sex: Female

DRUGS (11)
  1. MAGNESIUM [Concomitant]
     Active Substance: MAGNESIUM
     Dosage: 250 MG, DAILY
     Route: 048
  2. IBRANCE [Suspect]
     Active Substance: PALBOCICLIB
     Indication: BREAST CANCER METASTATIC
     Dosage: 100 MG, CYCLIC (100MG 1 CAPSULE BY MOUTH ONCE A DAY FOR 21 DAYS THEN OFF FOR 7 DAYS)
     Route: 048
     Dates: start: 20150427
  3. MELATONIN [Concomitant]
     Active Substance: MELATONIN
     Dosage: 1 MG, AS NEEDED
     Route: 048
  4. ZINC. [Concomitant]
     Active Substance: ZINC
     Dosage: 100 MG, DAILY
     Route: 048
  5. LETROZOLE. [Concomitant]
     Active Substance: LETROZOLE
     Dosage: 2.5 MG, DAILY
     Route: 048
  6. FEMARA [Concomitant]
     Active Substance: LETROZOLE
     Indication: BREAST CANCER METASTATIC
     Dosage: 2.5 MG, UNK
     Dates: start: 20150427
  7. CALCIUM 600+VIT D [Concomitant]
     Active Substance: CALCIUM\ERGOCALCIFEROL
     Dosage: 4 DF, DAILY (STRENGTH: 600 MG CALCIUM-200 UNIT)
     Route: 048
  8. COUMADIN [Concomitant]
     Active Substance: WARFARIN SODIUM
     Indication: THROMBOSIS
     Dosage: 10 MG, 1X/DAY
     Route: 048
     Dates: start: 20150510
  9. COUMADIN [Concomitant]
     Active Substance: WARFARIN SODIUM
     Dosage: UNK, DAILY (11 MG EVERY 2 DAYS)
     Route: 048
  10. GABAPENTIN. [Concomitant]
     Active Substance: GABAPENTIN
     Dosage: 300 MG, UNK (AS DIRECTED)
     Route: 048
  11. LISINOPRIL. [Concomitant]
     Active Substance: LISINOPRIL
     Indication: HYPERTENSION
     Dosage: 10 MG, DAILY (DAILY BEFORE SLEEP)
     Dates: start: 20150510

REACTIONS (4)
  - Fall [Recovered/Resolved with Sequelae]
  - Pulmonary thrombosis [Recovered/Resolved]
  - Limb injury [Recovering/Resolving]
  - Oesophageal disorder [Recovering/Resolving]

NARRATIVE: CASE EVENT DATE: 20150427
